FAERS Safety Report 4874533-8 (Version None)
Quarter: 2006Q1

REPORT INFORMATION
  Report Type: 
  Country: None (occurrence: None)
  Receive Date: 20060105
  Receipt Date: 20060105
  Transmission Date: 20060701
  Serious: Yes (Other)
  Sender: FDA-Public Use
  Company Number: None

PATIENT
  Sex: Female
  Weight: 85.7298 kg

DRUGS (1)
  1. EFFEXOR XR [Suspect]
     Indication: DEPRESSION
     Dates: start: 20021001, end: 20051231

REACTIONS (9)
  - DIZZINESS [None]
  - DRUG INEFFECTIVE [None]
  - DRUG WITHDRAWAL SYNDROME [None]
  - HANGOVER [None]
  - HYPERACUSIS [None]
  - HYPERTENSION [None]
  - IRRITABILITY [None]
  - SLEEP DISORDER [None]
  - WEIGHT INCREASED [None]
